FAERS Safety Report 5039563-4 (Version None)
Quarter: 2006Q2

REPORT INFORMATION
  Report Type: 
  Country: None (occurrence: None)
  Receive Date: 20060629
  Receipt Date: 20060623
  Transmission Date: 20061013
  Serious: Yes (Disabling, Other)
  Sender: FDA-Public Use
  Company Number: GB-BOEHRINGER INGELHEIM PHARMACEUTICALS, INC.-2006-UK-02947UK

PATIENT
  Age: 54 Year
  Sex: Female
  Weight: 90 kg

DRUGS (7)
  1. DIXARIT [Suspect]
     Indication: FLUSHING
     Route: 048
     Dates: start: 20060522, end: 20060525
  2. BETAMETHASONE [Concomitant]
  3. DIHYDROCODEINE [Concomitant]
  4. GABAPENTIN [Concomitant]
     Indication: SPONDYLITIS
  5. LISINOPRIL [Concomitant]
  6. OMEPRAZOLE [Concomitant]
  7. VERAPAMIL [Concomitant]

REACTIONS (2)
  - HEADACHE [None]
  - MONOPLEGIA [None]
